FAERS Safety Report 25230075 (Version 1)
Quarter: 2025Q2

REPORT INFORMATION
  Report Type: Spontaneous
  Country: US (occurrence: US)
  Receive Date: 20250423
  Receipt Date: 20250423
  Transmission Date: 20250717
  Serious: Yes (Other)
  Sender: AMGEN
  Company Number: US-AMGEN-USASP2025074716

PATIENT

DRUGS (6)
  1. CARFILZOMIB [Suspect]
     Active Substance: CARFILZOMIB
     Indication: Plasma cell myeloma refractory
     Route: 065
  2. BELANTAMAB MAFODOTIN [Suspect]
     Active Substance: BELANTAMAB MAFODOTIN
     Indication: Plasma cell myeloma refractory
     Route: 040
  3. DARATUMUMAB [Suspect]
     Active Substance: DARATUMUMAB
     Indication: Plasma cell myeloma refractory
     Route: 065
  4. BORTEZOMIB [Suspect]
     Active Substance: BORTEZOMIB
     Indication: Plasma cell myeloma refractory
     Route: 065
  5. DEXAMETHASONE [Suspect]
     Active Substance: DEXAMETHASONE
     Indication: Plasma cell myeloma refractory
     Route: 048
  6. LENALIDOMIDE [Suspect]
     Active Substance: LENALIDOMIDE
     Indication: Plasma cell myeloma refractory
     Route: 048

REACTIONS (14)
  - Thrombocytopenia [Unknown]
  - Hypokalaemia [Unknown]
  - Eye disorder [Unknown]
  - Corneal disorder [Unknown]
  - Visual acuity tests abnormal [Unknown]
  - Toxicity to various agents [Unknown]
  - Treatment noncompliance [Unknown]
  - Disease progression [Unknown]
  - Therapy partial responder [Unknown]
  - Vision blurred [Unknown]
  - Fatigue [Unknown]
  - Cough [Unknown]
  - Diarrhoea [Unknown]
  - Pain [Unknown]
